FAERS Safety Report 4847329-0 (Version None)
Quarter: 2005Q4

REPORT INFORMATION
  Report Type: 
  Country: None (occurrence: None)
  Receive Date: 20051207
  Receipt Date: 20051129
  Transmission Date: 20060501
  Serious: Yes (Death, Hospitalization)
  Sender: FDA-Public Use
  Company Number: NO-BRISTOL-MYERS SQUIBB COMPANY-13204177

PATIENT
  Age: 73 Year
  Sex: Female

DRUGS (5)
  1. GLUCOPHAGE [Suspect]
     Route: 048
     Dates: end: 20051115
  2. LISINOPRIL [Suspect]
     Route: 048
     Dates: end: 20051115
  3. MODIFENAC [Suspect]
     Dosage: 1-2 A DAY
     Route: 048
     Dates: end: 20051115
  4. XALATAN [Concomitant]
     Dosage: 1 DROP EACH EYE
     Route: 047
     Dates: end: 20051115
  5. AMARYL [Concomitant]
     Route: 048
     Dates: end: 20051115

REACTIONS (2)
  - METABOLIC ACIDOSIS [None]
  - RENAL FAILURE ACUTE [None]
